FAERS Safety Report 18399262 (Version 2)
Quarter: 2021Q2

REPORT INFORMATION
  Report Type: Spontaneous
  Country: US (occurrence: US)
  Receive Date: 20201019
  Receipt Date: 20210524
  Transmission Date: 20210717
  Serious: No
  Sender: FDA-Public Use
  Company Number: US-PFIZER INC-2020398811

PATIENT
  Age: 59 Year
  Sex: Female

DRUGS (1)
  1. LYRICA [Suspect]
     Active Substance: PREGABALIN
     Dosage: 750 MG, DAILY (1 PILL (150MG) BY MOUTH EACH MORNING. TAKE 2 PILLS (300MG) BY MOUTH EACH EVENING)
     Route: 048

REACTIONS (3)
  - Confusional state [Unknown]
  - Peripheral swelling [Unknown]
  - Hypoacusis [Unknown]
